FAERS Safety Report 4869307-8 (Version None)
Quarter: 2005Q4

REPORT INFORMATION
  Report Type: 
  Country: None (occurrence: None)
  Receive Date: 20051230
  Receipt Date: 20051205
  Transmission Date: 20060501
  Serious: Yes (Disabling)
  Sender: FDA-Public Use
  Company Number: PHFR2005GB03951

PATIENT
  Age: 54 Year
  Sex: Female
  Weight: 77 kg

DRUGS (7)
  1. FEMARA [Suspect]
     Indication: BREAST CANCER
     Dosage: 2.5MG/DAY
     Route: 048
     Dates: start: 20050915
  2. TAMOXIFEN [Suspect]
     Indication: BREAST CANCER
     Dosage: 20MG/DAY
     Route: 048
     Dates: start: 19991216, end: 20050919
  3. OMEPRAZOLE [Concomitant]
     Indication: REFLUX OESOPHAGITIS
     Dosage: 40MG/DAY
     Route: 048
  4. METFORMIN [Concomitant]
     Indication: DIABETES MELLITUS
     Dosage: 500MG/DAY
     Route: 048
     Dates: start: 20041115
  5. SIMVASTATIN [Concomitant]
     Indication: DIABETES MELLITUS
     Dosage: 10MG/DAY
     Route: 048
     Dates: start: 20041124, end: 20050915
  6. THYROXINE [Concomitant]
     Indication: HYPOTHYROIDISM
     Dosage: 0.1MG/DAY
     Route: 048
  7. INSULIN [Concomitant]
     Indication: DIABETES MELLITUS
     Route: 058
     Dates: start: 20041101

REACTIONS (2)
  - HEPATIC CIRRHOSIS [None]
  - HEPATIC STEATOSIS [None]
